FAERS Safety Report 24430679 (Version 1)
Quarter: 2024Q4

REPORT INFORMATION
  Report Type: Spontaneous
  Country: US (occurrence: US)
  Receive Date: 20241013
  Receipt Date: 20241013
  Transmission Date: 20250114
  Serious: No
  Sender: BAUSCH AND LOMB
  Company Number: US-BAUSCHBL-2024BNL034937

PATIENT
  Sex: Female

DRUGS (1)
  1. XIIDRA [Suspect]
     Active Substance: LIFITEGRAST
     Indication: Dry eye
     Route: 065

REACTIONS (5)
  - Eye irritation [Unknown]
  - Dysgeusia [Unknown]
  - Product use complaint [Unknown]
  - Patient dissatisfaction with treatment [Unknown]
  - Product after taste [Unknown]
